FAERS Safety Report 21961660 (Version 2)
Quarter: 2023Q1

REPORT INFORMATION
  Report Type: Spontaneous
  Country: FR (occurrence: FR)
  Receive Date: 20230207
  Receipt Date: 20230209
  Transmission Date: 20230417
  Serious: Yes (Other)
  Sender: FDA-Public Use
  Company Number: FR-TEVA-2023-FR-2851534

PATIENT
  Age: 44 Year

DRUGS (3)
  1. ESTRADIOL [Suspect]
     Active Substance: ESTRADIOL
     Indication: Hormone replacement therapy
     Dosage: 1.5 MILLIGRAM DAILY; 0.5 MILLIGRAM EVERY 8 HOUR(S) SOMETIMES TAKING IT UP TO 3 TIMES AT THE BEGINNIN
     Route: 062
  2. ESTRADIOL [Suspect]
     Active Substance: ESTRADIOL
     Dosage: 1 MILLIGRAM DAILY;
     Route: 062
  3. PRAZEPAM [Concomitant]
     Active Substance: PRAZEPAM
     Indication: Anxiety
     Route: 065

REACTIONS (7)
  - Retinal vein occlusion [Recovered/Resolved]
  - Blindness [Recovered/Resolved]
  - Metamorphopsia [Unknown]
  - Off label use [Unknown]
  - Treatment noncompliance [Unknown]
  - Retinopathy hypertensive [Recovered/Resolved]
  - Intentional product use issue [Recovered/Resolved]
